FAERS Safety Report 5857864-4 (Version None)
Quarter: 2008Q3

REPORT INFORMATION
  Report Type: 
  Country: None (occurrence: None)
  Receive Date: 20080826
  Receipt Date: 20080821
  Transmission Date: 20090109
  Serious: Yes (Life-Threatening, Hospitalization)
  Sender: FDA-Public Use
  Company Number: JP-ASTRAZENECA-2008AP04752

PATIENT
  Age: 72 Year
  Sex: Male
  Weight: 78 kg

DRUGS (5)
  1. ESOMEPRAZOLE [Suspect]
     Indication: REFLUX OESOPHAGITIS
     Route: 048
     Dates: start: 20080228, end: 20080716
  2. ZYLORIC [Concomitant]
     Indication: GOUT
     Dosage: NUMBER OF SEPARATE DOSAGES UNKNOWN
     Route: 048
     Dates: start: 20000208
  3. NORVASC [Concomitant]
     Indication: HYPERTENSION
     Dosage: NUMBER OF SEPARATE DOSAGES UNKNOWN
     Route: 048
     Dates: start: 20000208
  4. BETAPRESSIN [Concomitant]
     Indication: HYPERTENSION
     Dosage: NUMBER OF SEPARATE DOSAGES UNKNOWN
     Route: 048
     Dates: start: 20000523
  5. ALPRAZOLAM [Concomitant]
     Indication: INSOMNIA
     Dosage: NUMBER OF SEPARATE DOSAGES UNKNOWN
     Route: 048

REACTIONS (1)
  - TACHYARRHYTHMIA [None]
